FAERS Safety Report 14432578 (Version 1)
Quarter: 2018Q1

REPORT INFORMATION
  Report Type: Spontaneous
  Country: US (occurrence: US)
  Receive Date: 20180124
  Receipt Date: 20180124
  Transmission Date: 20180509
  Serious: No
  Sender: FDA-Public Use
  Company Number: US-BAYER-2018-013538

PATIENT
  Sex: Female

DRUGS (3)
  1. MIRAFIBER SUGAR FREE ORANGE POWDER [Concomitant]
     Active Substance: METHYLCELLULOSES
  2. MIRALAX [Suspect]
     Active Substance: POLYETHYLENE GLYCOL 3350
     Indication: CONSTIPATION
  3. MIRALAX [Suspect]
     Active Substance: POLYETHYLENE GLYCOL 3350
     Indication: GASTROINTESTINAL DISORDER
     Dosage: 1 DF, QD
     Route: 048
     Dates: start: 201801

REACTIONS (2)
  - Circumstance or information capable of leading to medication error [Unknown]
  - Product prescribing issue [Unknown]
